FAERS Safety Report 8308331-X (Version None)
Quarter: 2012Q2

REPORT INFORMATION
  Report Type: 
  Country: None (occurrence: None)
  Receive Date: 20120424
  Receipt Date: 20120414
  Transmission Date: 20120825
  Serious: Yes (Hospitalization, Other)
  Sender: FDA-Public Use
  Company Number: US-JNJFOC-20120407579

PATIENT
  Sex: Female
  Weight: 65.77 kg

DRUGS (12)
  1. SKELAXIN [Concomitant]
     Indication: MUSCLE RELAXANT THERAPY
     Route: 048
  2. MORPHINE [Suspect]
     Indication: PRODUCT USED FOR UNKNOWN INDICATION
  3. DURAGESIC-100 [Suspect]
     Indication: INTERVERTEBRAL DISC DEGENERATION
     Route: 062
     Dates: start: 20040101
  4. CLONAZEPAM [Suspect]
     Indication: ANXIETY
     Route: 048
     Dates: start: 20110901, end: 20110901
  5. VENLAFAXINE HCL [Suspect]
     Indication: ANXIETY
     Route: 048
     Dates: start: 20110101, end: 20110101
  6. FENTANY TRANDERMAL SYSTEM [Suspect]
     Indication: FIBROMYALGIA
     Route: 062
     Dates: end: 20120401
  7. DURAGESIC-100 [Suspect]
     Route: 062
     Dates: start: 20040101
  8. DURAGESIC-100 [Suspect]
     Route: 062
     Dates: start: 20120412
  9. OXYCODONE HCL AND ACETAMINOPHEN [Concomitant]
     Indication: BREAKTHROUGH PAIN
     Route: 048
  10. DURAGESIC-100 [Suspect]
     Indication: FIBROMYALGIA
     Route: 062
     Dates: start: 20120412
  11. DIOVAN [Concomitant]
     Indication: HYPERTENSION
     Route: 048
  12. FENTANY TRANDERMAL SYSTEM [Suspect]
     Indication: INTERVERTEBRAL DISC DEGENERATION
     Route: 062
     Dates: end: 20120401

REACTIONS (7)
  - THYMOMA [None]
  - FEELING ABNORMAL [None]
  - THROMBOSIS [None]
  - PRODUCT QUALITY ISSUE [None]
  - WITHDRAWAL SYNDROME [None]
  - PRODUCT PHYSICAL ISSUE [None]
  - COLONIC OBSTRUCTION [None]
